FAERS Safety Report 10329472 (Version 2)
Quarter: 2014Q4

REPORT INFORMATION
  Report Type: Spontaneous
  Country: GB (occurrence: GB)
  Receive Date: 20140721
  Receipt Date: 20141022
  Transmission Date: 20150528
  Serious: Yes (Other)
  Sender: FDA-Public Use
  Company Number: GB-ABBVIE-14P-167-1261584-00

PATIENT
  Age: 73 Year
  Sex: Female

DRUGS (2)
  1. VALPROATE SODIUM. [Suspect]
     Active Substance: VALPROATE SODIUM
     Indication: EPILEPSY
     Route: 048
     Dates: start: 1982
  2. WARFARIN [Concomitant]
     Active Substance: WARFARIN
     Indication: PRODUCT USED FOR UNKNOWN INDICATION
     Dosage: (CON)

REACTIONS (6)
  - Oedema peripheral [Unknown]
  - Hypoaesthesia [Unknown]
  - Gastrointestinal disorder [Unknown]
  - Gait disturbance [Unknown]
  - Lymphoedema [Unknown]
  - Cardiac failure [Unknown]
